FAERS Safety Report 4760054-X (Version None)
Quarter: 2005Q3

REPORT INFORMATION
  Report Type: 
  Country: None (occurrence: None)
  Receive Date: 20050902
  Receipt Date: 20050826
  Transmission Date: 20060218
  Serious: Yes (Life-Threatening, Hospitalization)
  Sender: FDA-Public Use
  Company Number: PT-JNJFOC-20050806708

PATIENT
  Age: 33 Year
  Sex: Female

DRUGS (7)
  1. REMICADE [Suspect]
     Route: 042
  2. REMICADE [Suspect]
     Route: 042
  3. REMICADE [Suspect]
     Indication: CROHN'S DISEASE
     Route: 042
  4. 5-ASA [Concomitant]
     Indication: CROHN'S DISEASE
     Dosage: ABOUT 2 YEARS AGO.
     Route: 065
  5. CORTICOTHERAPY [Concomitant]
     Indication: CROHN'S DISEASE
     Dosage: ABOUT 2 YEARS AGO.
     Route: 065
  6. SULFASALAZINE [Concomitant]
     Indication: CROHN'S DISEASE
  7. MESALAMINE [Concomitant]

REACTIONS (4)
  - AGRANULOCYTOSIS [None]
  - NEUTROPENIA [None]
  - PYREXIA [None]
  - TONSILLITIS [None]
